FAERS Safety Report 24269900 (Version 1)
Quarter: 2024Q3

REPORT INFORMATION
  Report Type: Spontaneous
  Country: US (occurrence: None)
  Receive Date: 20240830
  Receipt Date: 20240830
  Transmission Date: 20241016
  Serious: Yes (Death, Hospitalization)
  Sender: Public
  Company Number: None

PATIENT
  Sex: Female
  Weight: 55.2 kg

DRUGS (1)
  1. CARNITOR [Suspect]
     Active Substance: LEVOCARNITINE

REACTIONS (10)
  - Pain in extremity [None]
  - Condition aggravated [None]
  - Tachycardia [None]
  - Hypotension [None]
  - Syncope [None]
  - Cardiac arrest [None]
  - Oxygen saturation decreased [None]
  - Cardiac output decreased [None]
  - Escherichia test positive [None]
  - Septic shock [None]

NARRATIVE: CASE EVENT DATE: 20240822
